FAERS Safety Report 15907571 (Version 1)
Quarter: 2019Q1

REPORT INFORMATION
  Report Type: Spontaneous
  Country: CN (occurrence: CN)
  Receive Date: 20190204
  Receipt Date: 20190204
  Transmission Date: 20190417
  Serious: Yes (Hospitalization, Other)
  Sender: FDA-Public Use
  Company Number: CN-BAUSCH-BL-2019-003088

PATIENT
  Age: 78 Year
  Sex: Male

DRUGS (3)
  1. PRALIDOXIME [Concomitant]
     Active Substance: PRALIDOXIME
     Indication: CHEMICAL POISONING
     Dates: start: 201704
  2. PENEHYCLIDINE HYDROCHLORIDE [Concomitant]
     Indication: CHEMICAL POISONING
     Dates: start: 201704
  3. ATROPINE. [Suspect]
     Active Substance: ATROPINE
     Indication: CHEMICAL POISONING
     Route: 065
     Dates: start: 201704

REACTIONS (19)
  - Toxicity to various agents [Recovering/Resolving]
  - Muscle spasms [Recovering/Resolving]
  - Nausea [Recovering/Resolving]
  - Dry skin [Recovering/Resolving]
  - Pyrexia [Recovered/Resolved]
  - Blood pressure systolic increased [Recovering/Resolving]
  - Heart rate increased [Recovering/Resolving]
  - Delirium [Recovering/Resolving]
  - Vomiting [Recovered/Resolved]
  - Flushing [Recovering/Resolving]
  - Electrocardiogram ST segment abnormal [Recovered/Resolved]
  - Pupillary light reflex tests abnormal [Recovering/Resolving]
  - Irritability [Recovering/Resolving]
  - Liver function test abnormal [Recovered/Resolved]
  - White blood cell count increased [Recovered/Resolved]
  - Atrial fibrillation [Recovering/Resolving]
  - Agitation [Recovering/Resolving]
  - Breath sounds abnormal [Recovering/Resolving]
  - Renal function test abnormal [Recovered/Resolved]

NARRATIVE: CASE EVENT DATE: 20170407
